FAERS Safety Report 16355716 (Version 1)
Quarter: 2019Q2

REPORT INFORMATION
  Report Type: Spontaneous
  Country: ES (occurrence: ES)
  Receive Date: 20190525
  Receipt Date: 20190525
  Transmission Date: 20190711
  Serious: Yes (Life-Threatening, Hospitalization)
  Sender: FDA-Public Use
  Company Number: PHHY2019ES120493

PATIENT
  Age: 49 Year
  Sex: Female
  Weight: 100 kg

DRUGS (4)
  1. SECUKINUMAB. [Suspect]
     Active Substance: SECUKINUMAB
     Indication: AXIAL SPONDYLOARTHRITIS
     Dosage: 150 MG, QW
     Route: 058
     Dates: start: 20190508, end: 20190513
  2. SOLIFENACINA [Concomitant]
     Indication: PRODUCT USED FOR UNKNOWN INDICATION
     Dosage: UNK
     Route: 065
     Dates: start: 201902, end: 201904
  3. SIMPONI [Concomitant]
     Active Substance: GOLIMUMAB
     Indication: PRODUCT USED FOR UNKNOWN INDICATION
     Dosage: UNK
     Route: 058
  4. LEFLUNOMIDA [Interacting]
     Active Substance: LEFLUNOMIDE
     Indication: AXIAL SPONDYLOARTHRITIS
     Dosage: 10 MG, QD
     Route: 048
     Dates: start: 20190207, end: 20190513

REACTIONS (2)
  - Cerebral haemorrhage [Not Recovered/Not Resolved]
  - Accelerated hypertension [Recovered/Resolved with Sequelae]

NARRATIVE: CASE EVENT DATE: 20190513
